FAERS Safety Report 6865492-7 (Version None)
Quarter: 2010Q3

REPORT INFORMATION
  Report Type: 
  Country: None (occurrence: None)
  Receive Date: 20100721
  Receipt Date: 20080712
  Transmission Date: 20110219
  Serious: Yes (Other)
  Sender: FDA-Public Use
  Company Number: US-PFIZER INC-2008036008

PATIENT
  Sex: Male
  Weight: 81.6 kg

DRUGS (4)
  1. CHANTIX [Suspect]
     Indication: SMOKING CESSATION THERAPY
     Route: 048
     Dates: start: 20080201, end: 20080201
  2. CHANTIX [Suspect]
     Indication: TOBACCO USER
  3. ANTIHYPERTENSIVES [Concomitant]
  4. DRUG USED IN DIABETES [Concomitant]

REACTIONS (5)
  - ABNORMAL BEHAVIOUR [None]
  - ALCOHOL USE [None]
  - DEPRESSION [None]
  - MENTAL DISORDER [None]
  - SUICIDAL IDEATION [None]
